FAERS Safety Report 8418700-5 (Version None)
Quarter: 2012Q2

REPORT INFORMATION
  Report Type: 
  Country: None (occurrence: None)
  Receive Date: 20120607
  Receipt Date: 20120604
  Transmission Date: 20120825
  Serious: No
  Sender: FDA-Public Use
  Company Number: VE-PFIZER INC-2012128141

PATIENT
  Age: 47 Year
  Sex: Female

DRUGS (2)
  1. ZOLOFT [Concomitant]
     Dosage: UNK
     Route: 048
     Dates: start: 20110101
  2. LIPITOR [Suspect]
     Dosage: UNK
     Route: 048
     Dates: start: 20110101

REACTIONS (1)
  - NO ADVERSE EVENT [None]
